FAERS Safety Report 16318783 (Version 1)
Quarter: 2019Q2

REPORT INFORMATION
  Report Type: Spontaneous
  Country: US (occurrence: US)
  Receive Date: 20190516
  Receipt Date: 20190516
  Transmission Date: 20190711
  Serious: Yes (Life-Threatening, Hospitalization, Other)
  Sender: FDA-Public Use
  Company Number: US-BAYER-2019-092727

PATIENT
  Age: 63 Year
  Sex: Male

DRUGS (4)
  1. RANOLAZINE. [Concomitant]
     Active Substance: RANOLAZINE
  2. CLOPIDOGREL [Concomitant]
     Active Substance: CLOPIDOGREL BISULFATE
  3. NITROGLYCERIN. [Concomitant]
     Active Substance: NITROGLYCERIN
     Indication: ARTERIOSPASM CORONARY
     Dosage: UNK
  4. ACETYLSALICYLIC ACID (PAIN AND FEVER) [Suspect]
     Active Substance: ASPIRIN
     Indication: ARTHRALGIA
     Dosage: UNK

REACTIONS (4)
  - Acute coronary syndrome [Unknown]
  - Drug hypersensitivity [Unknown]
  - Kounis syndrome [Unknown]
  - Acute myocardial infarction [Unknown]
